FAERS Safety Report 12464303 (Version 1)
Quarter: 2016Q2

REPORT INFORMATION
  Report Type: Spontaneous
  Country: US (occurrence: US)
  Receive Date: 20160614
  Receipt Date: 20160614
  Transmission Date: 20160815
  Serious: No
  Sender: FDA-Public Use
  Company Number: US-BEH-2016070217

PATIENT
  Sex: Male
  Weight: 82.54 kg

DRUGS (24)
  1. LEVAQUIN [Concomitant]
     Active Substance: LEVOFLOXACIN
  2. ALBUTEROL W/TRIAMCINOLONE [Concomitant]
  3. ZEMAIRA [Suspect]
     Active Substance: .ALPHA.1-PROTEINASE INHIBITOR HUMAN
     Indication: ALPHA-1 ANTI-TRYPSIN DEFICIENCY
     Dosage: 60 MG/KG, QW
     Route: 042
  4. KLONOPIN [Concomitant]
     Active Substance: CLONAZEPAM
  5. DIPHENHYDRAMINE. [Concomitant]
     Active Substance: DIPHENHYDRAMINE
  6. SODIUM CHLORIDE. [Concomitant]
     Active Substance: SODIUM CHLORIDE
  7. LISINOPRIL. [Concomitant]
     Active Substance: LISINOPRIL
  8. FLUTICASONE [Concomitant]
     Active Substance: FLUTICASONE\FLUTICASONE PROPIONATE
  9. MELOXICAM. [Concomitant]
     Active Substance: MELOXICAM
  10. PREDNISONE. [Concomitant]
     Active Substance: PREDNISONE
  11. ADVAIR HFA [Concomitant]
     Active Substance: FLUTICASONE PROPIONATE\SALMETEROL XINAFOATE
  12. PROAIR HFA [Concomitant]
     Active Substance: ALBUTEROL SULFATE
  13. OXYGEN. [Concomitant]
     Active Substance: OXYGEN
  14. TOPROL XL [Concomitant]
     Active Substance: METOPROLOL SUCCINATE
  15. ONGLYZA [Concomitant]
     Active Substance: SAXAGLIPTIN HYDROCHLORIDE
  16. ZEMAIRA [Suspect]
     Active Substance: .ALPHA.1-PROTEINASE INHIBITOR HUMAN
     Indication: COMPLEMENT DEFICIENCY DISEASE
  17. CYMBALTA [Concomitant]
     Active Substance: DULOXETINE HYDROCHLORIDE
  18. EPIPEN [Concomitant]
     Active Substance: EPINEPHRINE
  19. LMX                                /00033401/ [Concomitant]
  20. LANTUS [Concomitant]
     Active Substance: INSULIN GLARGINE
  21. CYCLOBENZAPRINE [Concomitant]
     Active Substance: CYCLOBENZAPRINE
  22. GLUCOPHAGE [Concomitant]
     Active Substance: METFORMIN HYDROCHLORIDE
  23. SYMBICORT [Concomitant]
     Active Substance: BUDESONIDE\FORMOTEROL FUMARATE DIHYDRATE
  24. SPIRIVA [Concomitant]
     Active Substance: TIOTROPIUM BROMIDE MONOHYDRATE

REACTIONS (1)
  - Nasopharyngitis [Unknown]
